FAERS Safety Report 5351124-6 (Version None)
Quarter: 2007Q2

REPORT INFORMATION
  Report Type: 
  Country: None (occurrence: None)
  Receive Date: 20070608
  Receipt Date: 20070530
  Transmission Date: 20071010
  Serious: Yes (Hospitalization, Other)
  Sender: FDA-Public Use
  Company Number: BR-PFIZER INC-2007034686

PATIENT
  Age: 80 Year
  Sex: Female

DRUGS (6)
  1. LIPITOR [Suspect]
     Indication: DYSLIPIDAEMIA
     Route: 048
  2. ATENOLOL [Concomitant]
     Dosage: TEXT:20 MG
     Route: 048
  3. ACETYLSALICYLIC ACID SRT [Concomitant]
     Dosage: TEXT:100 MG
     Route: 048
     Dates: start: 20020101
  4. MULTIVITAMIN [Concomitant]
     Route: 048
     Dates: start: 20000101
  5. EUTHYROX [Concomitant]
     Dosage: TEXT:100 MCG
     Route: 048
  6. ISCOVER [Concomitant]
     Dosage: TEXT:75 MG
     Route: 048

REACTIONS (9)
  - ANGIOPATHY [None]
  - ANGIOPLASTY [None]
  - ARRHYTHMIA [None]
  - ASTHENIA [None]
  - CHEST PAIN [None]
  - FATIGUE [None]
  - MALAISE [None]
  - STENT PLACEMENT [None]
  - VASCULAR OCCLUSION [None]
